FAERS Safety Report 4724773-3 (Version None)
Quarter: 2005Q3

REPORT INFORMATION
  Report Type: 
  Country: None (occurrence: None)
  Receive Date: 20050726
  Receipt Date: 20050722
  Transmission Date: 20060218
  Serious: Yes (Hospitalization)
  Sender: FDA-Public Use
  Company Number: HCM-5392

PATIENT

DRUGS (2)
  1. TOPOTECAN [Suspect]
     Dosage: .5MGM2 PER DAY
     Route: 042
  2. NO CONCURRENT MEDICATION [Concomitant]

REACTIONS (1)
  - ILEUS PARALYTIC [None]
